FAERS Safety Report 7344520-9 (Version None)
Quarter: 2011Q1

REPORT INFORMATION
  Report Type: 
  Country: None (occurrence: None)
  Receive Date: 20110308
  Receipt Date: 20110308
  Transmission Date: 20110831
  Serious: No
  Sender: FDA-Public Use
  Company Number: None

PATIENT
  Age: 56 Year
  Sex: Female
  Weight: 76.2043 kg

DRUGS (2)
  1. XICAM NASAL SPRAY DON'T KNOW XICAM [Suspect]
     Indication: NASAL CONGESTION
     Dosage: 1 SPRAY 2X DAY NASAL
     Route: 045
     Dates: start: 20060510, end: 20060518
  2. XICAM NASAL SPRAY DON'T KNOW XICAM [Suspect]
     Indication: NASOPHARYNGITIS
     Dosage: 1 SPRAY 2X DAY NASAL
     Route: 045
     Dates: start: 20060510, end: 20060518

REACTIONS (1)
  - ANOSMIA [None]
